FAERS Safety Report 10137415 (Version 1)
Quarter: 2014Q2

REPORT INFORMATION
  Report Type: Spontaneous
  Country: US (occurrence: US)
  Receive Date: 20140429
  Receipt Date: 20140429
  Transmission Date: 20141212
  Serious: Yes (Hospitalization)
  Sender: FDA-Public Use
  Company Number: US-BAYER-2014-059603

PATIENT
  Age: 50 Year
  Sex: Female

DRUGS (20)
  1. YAZ [Suspect]
  2. YASMIN [Suspect]
  3. OCELLA [Suspect]
  4. ADVAIR [Concomitant]
     Dosage: UNK
     Dates: start: 20100914
  5. TIZANIDINE [Concomitant]
     Dosage: 4 MG, UNK
  6. NEXIUM [Concomitant]
     Dosage: 40 MG, UNK
  7. EFFEXOR [Concomitant]
     Dosage: 150 MG, UNK
  8. XANAX [Concomitant]
     Dosage: 0.5 MG, UNK
  9. LYRICA [Concomitant]
     Indication: HEADACHE
     Dosage: 100 MG, UNK
  10. TORSEMIDE [Concomitant]
     Dosage: 100 MG, UNK
  11. TRAMADOL [Concomitant]
     Dosage: 50 MG, UNK
  12. LEVOTHYROXINE [Concomitant]
     Dosage: 75 MG, UNK
  13. SINGULAIR [Concomitant]
     Dosage: 10 MG, UNK
  14. STRATTERA [Concomitant]
     Dosage: 25 MG, UNK
  15. CELEBREX [Concomitant]
     Dosage: 200 MG, UNK
  16. POTASSIUM [Concomitant]
  17. ARIXTRA [Concomitant]
  18. FLAGYL [Concomitant]
  19. BIAXIN [Concomitant]
     Indication: RESPIRATORY DISORDER
  20. FRAGMIN [Concomitant]

REACTIONS (4)
  - Pulmonary embolism [Recovered/Resolved]
  - Deep vein thrombosis [Recovered/Resolved]
  - Pulmonary embolism [None]
  - Vena cava thrombosis [None]
